FAERS Safety Report 8561624-3 (Version None)
Quarter: 2012Q3

REPORT INFORMATION
  Report Type: 
  Country: None (occurrence: None)
  Receive Date: 20120802
  Receipt Date: 20120720
  Transmission Date: 20120928
  Serious: No
  Sender: FDA-Public Use
  Company Number: US-ASTRAZENECA-2012SE51236

PATIENT
  Age: 69 Year
  Sex: Female

DRUGS (3)
  1. SYMBICORT [Suspect]
     Route: 055
  2. ALBUTEROL [Concomitant]
  3. PULMICORT FLEXHALER [Suspect]
     Indication: ASTHMA
     Dosage: 180 MCG, TWO INHALATION IN AM AND ONE IN PM
     Route: 055
     Dates: start: 19900101

REACTIONS (8)
  - WEIGHT INCREASED [None]
  - OSTEOPOROSIS [None]
  - ASTHMA [None]
  - DRUG INEFFECTIVE [None]
  - OSTEOPENIA [None]
  - CHEST PAIN [None]
  - SEASONAL ALLERGY [None]
  - PRURITUS [None]
